FAERS Safety Report 4722513-5 (Version None)
Quarter: 2005Q3

REPORT INFORMATION
  Report Type: 
  Country: None (occurrence: None)
  Receive Date: 20050722
  Receipt Date: 20050525
  Transmission Date: 20060218
  Serious: No
  Sender: FDA-Public Use
  Company Number: US-GLAXOSMITHKLINE-A0560111A

PATIENT
  Age: 66 Year
  Sex: Female

DRUGS (5)
  1. AVANDIA [Suspect]
     Dosage: 4MG PER DAY
     Route: 048
     Dates: start: 20050511, end: 20050525
  2. BENICAR [Concomitant]
  3. LIPITOR [Concomitant]
  4. ASPIRIN [Concomitant]
  5. METFORMIN [Concomitant]

REACTIONS (4)
  - DYSPNOEA [None]
  - HYPOAESTHESIA ORAL [None]
  - NAUSEA [None]
  - OEDEMA PERIPHERAL [None]
